FAERS Safety Report 14896140 (Version 3)
Quarter: 2019Q1

REPORT INFORMATION
  Report Type: Report from Study
  Country: HU (occurrence: HU)
  Receive Date: 20180515
  Receipt Date: 20190108
  Transmission Date: 20190417
  Serious: Yes (Hospitalization)
  Sender: FDA-Public Use
  Company Number: HU-TAKEDA-2018MPI005201

PATIENT
  Age: 84 Year
  Sex: Male
  Weight: 58 kg

DRUGS (18)
  1. NOACID                             /00057401/ [Concomitant]
     Dosage: UNK
  2. INSUMAN BASAL [Concomitant]
     Active Substance: INSULIN HUMAN
     Dosage: UNK
  3. TAMSOL [Concomitant]
     Dosage: UNK
  4. VENTOLIN [Concomitant]
     Active Substance: ALBUTEROL SULFATE
     Dosage: UNK
  5. DOLFORIN [Concomitant]
     Active Substance: FENTANYL
     Dosage: UNK
  6. BLINDED IXAZOMIB [Suspect]
     Active Substance: IXAZOMIB
     Indication: PLASMA CELL MYELOMA
     Dosage: 3 MG, 1/WEEK
     Route: 065
     Dates: start: 20161214, end: 20180508
  7. QUAMATEL [Concomitant]
     Active Substance: FAMOTIDINE
     Dosage: UNK
  8. COVEREX AS [Concomitant]
     Active Substance: PERINDOPRIL ARGININE
     Dosage: UNK
  9. FOSTER                             /00500401/ [Concomitant]
     Active Substance: PIROXICAM
     Dosage: UNK
  10. MEDROL [Concomitant]
     Active Substance: METHYLPREDNISOLONE
     Dosage: UNK
  11. FUROSEMIDE. [Concomitant]
     Active Substance: FUROSEMIDE
     Dosage: UNK
  12. FRONTIN [Concomitant]
     Active Substance: ALPRAZOLAM
     Dosage: UNK
  13. SMECTA [Concomitant]
     Active Substance: MONTMORILLONITE
     Dosage: UNK
  14. MEFORAL                            /00082701/ [Concomitant]
     Dosage: UNK
  15. NITROMINT [Concomitant]
     Active Substance: NITROGLYCERIN
     Dosage: UNK
  16. PANTOPRAZOLE [Concomitant]
     Active Substance: PANTOPRAZOLE
     Dosage: UNK
  17. BLINDED PLACEBO [Suspect]
     Active Substance: INVESTIGATIONAL PRODUCT
     Indication: PLASMA CELL MYELOMA
     Dosage: 3 MG, 1/WEEK
     Route: 065
     Dates: start: 20161214, end: 20180508
  18. VEROSPIRON [Concomitant]
     Active Substance: SPIRONOLACTONE
     Dosage: UNK

REACTIONS (1)
  - Anaemia [Recovered/Resolved with Sequelae]

NARRATIVE: CASE EVENT DATE: 20180424
